FAERS Safety Report 11517439 (Version 1)
Quarter: 2015Q3

REPORT INFORMATION
  Report Type: Spontaneous
  Country: US (occurrence: None)
  Receive Date: 20150916
  Receipt Date: 20150916
  Transmission Date: 20151125
  Serious: Yes (Life-Threatening, Hospitalization)
  Sender: FDA-Public Use
  Company Number: None

PATIENT
  Age: 66 Year
  Sex: Female
  Weight: 49.44 kg

DRUGS (2)
  1. MACROBID [Suspect]
     Active Substance: NITROFURANTOIN\NITROFURANTOIN MONOHYDRATE
     Indication: URINARY TRACT INFECTION
     Route: 048
     Dates: start: 20150608, end: 20150615
  2. ONE-A-DAY NOS [Concomitant]
     Active Substance: MINERALS\VITAMINS

REACTIONS (11)
  - Hypersensitivity [None]
  - Hypoaesthesia [None]
  - Asthenia [None]
  - Lethargy [None]
  - Alopecia [None]
  - Dysuria [None]
  - Gastrointestinal motility disorder [None]
  - Blister [None]
  - Photopsia [None]
  - Dyskinesia [None]
  - Tremor [None]

NARRATIVE: CASE EVENT DATE: 20150914
